FAERS Safety Report 4569103-5 (Version None)
Quarter: 2005Q1

REPORT INFORMATION
  Report Type: 
  Country: None (occurrence: None)
  Receive Date: 20050201
  Receipt Date: 20050117
  Transmission Date: 20050727
  Serious: No
  Sender: FDA-Public Use
  Company Number: 2005AC00104

PATIENT
  Age: 21 Year
  Sex: Female
  Weight: 69 kg

DRUGS (4)
  1. BUPIVACAINE [Suspect]
     Indication: SPINAL ANAESTHESIA
     Dosage: 12 MG ONCE IT
  2. MORPHINE [Suspect]
     Indication: SPINAL ANAESTHESIA
     Dosage: 0.2 MG ONCE IT
  3. FENTANYL [Suspect]
     Indication: SPINAL ANAESTHESIA
     Dosage: 5 UG ONCE IT
  4. COCAINE [Suspect]

REACTIONS (5)
  - BRADYARRHYTHMIA [None]
  - DRUG SCREEN POSITIVE [None]
  - ELECTROCARDIOGRAM ST SEGMENT DEPRESSION [None]
  - HYPOTENSION [None]
  - POISONING [None]
